FAERS Safety Report 9812101 (Version 1)
Quarter: 2014Q1

REPORT INFORMATION
  Report Type: Report from Study
  Country: CH (occurrence: CH)
  Receive Date: 20140111
  Receipt Date: 20140111
  Transmission Date: 20141002
  Serious: Yes (Hospitalization)
  Sender: FDA-Public Use
  Company Number: CH-ASTRAZENECA-2014SE00890

PATIENT
  Age: 28 Year
  Sex: Male

DRUGS (1)
  1. QUETIAPINE XR [Suspect]
     Route: 048

REACTIONS (7)
  - Overdose [Unknown]
  - Bezoar [Unknown]
  - Disturbance in attention [Unknown]
  - Tachycardia [Unknown]
  - Somnolence [Unknown]
  - Hypotension [Unknown]
  - Dyskinesia [Unknown]
